FAERS Safety Report 21446559 (Version 1)
Quarter: 2022Q4

REPORT INFORMATION
  Report Type: Spontaneous
  Country: US (occurrence: None)
  Receive Date: 20221011
  Receipt Date: 20221011
  Transmission Date: 20230113
  Serious: Yes (Hospitalization)
  Sender: FDA-Public Use
  Company Number: None

PATIENT
  Age: 78 Year
  Sex: Male
  Weight: 124 kg

DRUGS (2)
  1. APIXABAN [Suspect]
     Active Substance: APIXABAN
     Indication: Atrial fibrillation
     Dosage: 5 MG BID PO
     Route: 048
     Dates: start: 20220131
  2. ASPIRIN [Suspect]
     Active Substance: ASPIRIN
     Indication: Cerebrovascular accident prophylaxis
     Dosage: 81 MG AM PO?
     Route: 048
     Dates: start: 20060330

REACTIONS (4)
  - Diarrhoea haemorrhagic [None]
  - Haemorrhoidal haemorrhage [None]
  - Condition aggravated [None]
  - Gastric haemorrhage [None]

NARRATIVE: CASE EVENT DATE: 20220902
